FAERS Safety Report 19707481 (Version 1)
Quarter: 2021Q3

REPORT INFORMATION
  Report Type: Spontaneous
  Country: TR (occurrence: TR)
  Receive Date: 20210817
  Receipt Date: 20210817
  Transmission Date: 20211014
  Serious: Yes (Hospitalization, Other)
  Sender: FDA-Public Use
  Company Number: TR-SA-2021SA266504

PATIENT
  Age: 57 Year
  Sex: Male

DRUGS (2)
  1. INTERFERON BETA?1B [Concomitant]
     Active Substance: INTERFERON BETA-1B
     Indication: MULTIPLE SCLEROSIS
     Dosage: 8000000 IU, QOD
     Route: 058
  2. TERIFLUNOMIDE. [Suspect]
     Active Substance: TERIFLUNOMIDE
     Indication: MULTIPLE SCLEROSIS
     Dosage: 14 MG, QD
     Route: 048
     Dates: start: 2011

REACTIONS (2)
  - Trigeminal neuralgia [Recovering/Resolving]
  - Neuralgia [Recovering/Resolving]
